FAERS Safety Report 21553898 (Version 1)
Quarter: 2022Q4

REPORT INFORMATION
  Report Type: Spontaneous
  Country: UA (occurrence: US)
  Receive Date: 20221104
  Receipt Date: 20221104
  Transmission Date: 20230112
  Serious: No
  Sender: FDA-Public Use
  Company Number: 2022A364800

PATIENT
  Sex: Female

DRUGS (3)
  1. SEROQUEL [Suspect]
     Active Substance: QUETIAPINE FUMARATE
     Route: 048
  2. SEROQUEL [Suspect]
     Active Substance: QUETIAPINE FUMARATE
     Route: 048
     Dates: start: 20221017
  3. CAPLYTA [Concomitant]
     Active Substance: LUMATEPERONE

REACTIONS (3)
  - Middle insomnia [Unknown]
  - Feeling of body temperature change [Unknown]
  - Pain [Unknown]
